FAERS Safety Report 8202393-6 (Version None)
Quarter: 2012Q1

REPORT INFORMATION
  Report Type: 
  Country: None (occurrence: None)
  Receive Date: 20120312
  Receipt Date: 20110812
  Transmission Date: 20120608
  Serious: No
  Sender: FDA-Public Use
  Company Number: US-ABBOTT-11P-163-0846770-00

PATIENT
  Sex: Female

DRUGS (6)
  1. DEPAKOTE [Suspect]
     Dates: start: 19970101, end: 20110801
  2. DEPAKOTE [Suspect]
     Dates: start: 20110810
  3. DEPAKOTE [Suspect]
     Indication: POST-TRAUMATIC STRESS DISORDER
     Dates: start: 20110801, end: 20110809
  4. AMBIEN CR [Concomitant]
     Indication: INSOMNIA
  5. ATIVAN [Concomitant]
     Indication: ANXIETY
  6. AMBIEN CR [Concomitant]

REACTIONS (6)
  - SEDATION [None]
  - ANXIETY [None]
  - AFFECT LABILITY [None]
  - HEADACHE [None]
  - NERVOUSNESS [None]
  - WEIGHT INCREASED [None]
